FAERS Safety Report 5241024-4 (Version None)
Quarter: 2007Q1

REPORT INFORMATION
  Report Type: 
  Country: None (occurrence: None)
  Receive Date: 20070219
  Receipt Date: 20070209
  Transmission Date: 20070707
  Serious: Yes (Death)
  Sender: FDA-Public Use
  Company Number: US-ABBOTT-07P-163-0359292-00

PATIENT
  Age: 43 Year
  Sex: Female

DRUGS (5)
  1. DILAUDID-HP [Suspect]
     Indication: ANALGESIC EFFECT
     Route: 030
     Dates: start: 20030401
  2. DILAUDID-HP [Suspect]
     Indication: MIGRAINE
  3. PHENERGAN [Concomitant]
     Indication: DRUG USE FOR UNKNOWN INDICATION
     Dates: start: 20030401
  4. LORAZEPAM [Concomitant]
     Indication: DRUG USE FOR UNKNOWN INDICATION
     Dates: start: 20030401
  5. KETOROLAC TROMETHAMINE [Concomitant]
     Indication: DRUG USE FOR UNKNOWN INDICATION
     Dates: start: 20030401

REACTIONS (2)
  - MEDICATION ERROR [None]
  - OVERDOSE [None]
